FAERS Safety Report 22033301 (Version 1)
Quarter: 2023Q1

REPORT INFORMATION
  Report Type: Spontaneous
  Country: FR (occurrence: FR)
  Receive Date: 20230224
  Receipt Date: 20230224
  Transmission Date: 20230418
  Serious: Yes (Other)
  Sender: FDA-Public Use
  Company Number: FR-INCYTE CORPORATION-2022IN013003

PATIENT
  Age: 64 Year
  Sex: Male

DRUGS (4)
  1. ICLUSIG [Suspect]
     Active Substance: PONATINIB
     Indication: Product used for unknown indication
     Dosage: 45 MILLIGRAM, QD
     Route: 065
     Dates: end: 20200720
  2. ICLUSIG [Suspect]
     Active Substance: PONATINIB
     Dosage: 30 MILLIGRAM, QD
     Route: 065
     Dates: start: 20200720
  3. BOSULIF [Suspect]
     Active Substance: BOSUTINIB MONOHYDRATE
     Indication: Acute myeloid leukaemia
     Dosage: UNK
     Route: 065
     Dates: start: 20190523, end: 20200326
  4. VIDAZA [Suspect]
     Active Substance: AZACITIDINE
     Indication: Product used for unknown indication
     Dosage: UNK
     Route: 065

REACTIONS (1)
  - Agranulocytosis [Recovered/Resolved]
